FAERS Safety Report 8177724-6 (Version None)
Quarter: 2012Q1

REPORT INFORMATION
  Report Type: 
  Country: None (occurrence: None)
  Receive Date: 20120301
  Receipt Date: 20120227
  Transmission Date: 20120608
  Serious: Yes (Death, Other)
  Sender: FDA-Public Use
  Company Number: PHEH2011US05276

PATIENT
  Sex: Female

DRUGS (33)
  1. TASIGNA [Suspect]
     Dosage: 200 MG, BID
     Route: 048
  2. CRESTOR [Concomitant]
     Dosage: 20 MG, QD
  3. LUCENTIS [Concomitant]
     Dosage: UNK UKN, UNK
  4. NITROGLYCERIN [Concomitant]
     Dosage: 0.4 MG, DAILY
     Route: 060
  5. ZOSTAVAX [Concomitant]
     Dosage: UNK UKN, UNK
  6. OXYCONTIN [Concomitant]
     Dosage: 10 MG, Q12H
     Route: 048
  7. GABAPENTIN [Concomitant]
     Dosage: 100 MG, Q4H
     Route: 048
  8. NEPHROCAPS [Concomitant]
     Dosage: 1 DF, QD
     Route: 048
  9. ALBUTEROL SULFATE [Concomitant]
     Dosage: UNK UKN, UNK
  10. FLUTICASONE PROPIONATE [Concomitant]
     Dosage: 50 UG, QD
     Route: 045
  11. ZOFRAN [Concomitant]
     Dosage: 4 MG, Q8H
     Route: 048
  12. MORPHINE SULFATE [Concomitant]
     Dosage: 20 MG/ML, Q2H
     Route: 048
  13. ASPIRIN [Concomitant]
  14. LUTEIN [Concomitant]
     Dosage: 20 MG, QD
     Route: 048
  15. ISOSORBIDE MONONITRATE [Concomitant]
     Dosage: 30 MG, QD
     Route: 048
  16. PROCRIT [Concomitant]
     Dosage: UNK UKN, UNK
  17. LISINOPRIL [Concomitant]
     Dosage: 10 MG, QD
     Route: 048
  18. STOOL SOFTENER [Concomitant]
  19. CARAFATE [Concomitant]
     Dosage: 1 G, BID
     Route: 048
  20. LORAZEPAM [Concomitant]
     Dosage: 1 MG, Q3H
     Route: 048
  21. CARVEDILOL [Concomitant]
     Dosage: 6.25 MG, BID
     Route: 048
  22. PERCOCET [Concomitant]
     Dosage: UNK UKN, UNK
  23. WARFARIN SODIUM [Concomitant]
  24. FERROUS SULFATE TAB [Concomitant]
     Dosage: 325 MG, BID
     Route: 048
  25. AMIODARONE HYDROCHLORIDE [Concomitant]
     Dosage: 2 DF, QD
  26. ZEMPLAR [Concomitant]
     Dosage: 2 UG, QD
     Route: 048
  27. COREG [Concomitant]
     Dosage: 10 MG, UNK
  28. OMEPRAZOLE [Concomitant]
  29. SPIRIVA [Concomitant]
     Dosage: UNK UKN, UNK
  30. RENEVELA [Concomitant]
     Dosage: UNK UKN, UNK
  31. NEURONTIN [Concomitant]
     Dosage: 100 MG, UNK
  32. RENAGEL [Concomitant]
  33. LIDOCAINE HCL [Concomitant]
     Dosage: UNK UKN, UNK

REACTIONS (4)
  - CARDIAC FAILURE CONGESTIVE [None]
  - RENAL FAILURE CHRONIC [None]
  - GENERAL PHYSICAL HEALTH DETERIORATION [None]
  - NEPHROGENIC SYSTEMIC FIBROSIS [None]
